FAERS Safety Report 12161473 (Version 1)
Quarter: 2016Q1

REPORT INFORMATION
  Report Type: Report from Study
  Country: US (occurrence: US)
  Receive Date: 20160309
  Receipt Date: 20160309
  Transmission Date: 20160526
  Serious: No
  Sender: FDA-Public Use
  Company Number: US-AMGEN-USASL2016026975

PATIENT
  Age: 50 Year
  Sex: Female

DRUGS (1)
  1. ENBREL [Suspect]
     Active Substance: ETANERCEPT
     Indication: PRODUCT USED FOR UNKNOWN INDICATION
     Dosage: UNK
     Route: 065

REACTIONS (11)
  - Clumsiness [Unknown]
  - Bronchitis [Unknown]
  - Injection site bruising [Unknown]
  - Contusion [Unknown]
  - Spinal pain [Unknown]
  - Visual impairment [Unknown]
  - Scar [Unknown]
  - Fall [Unknown]
  - Limb injury [Unknown]
  - Increased tendency to bruise [Unknown]
  - Gastroenteritis viral [Unknown]

NARRATIVE: CASE EVENT DATE: 2016
